FAERS Safety Report 5566540-7 (Version None)
Quarter: 2007Q4

REPORT INFORMATION
  Report Type: 
  Country: None (occurrence: None)
  Receive Date: 20071219
  Receipt Date: 20071213
  Transmission Date: 20080405
  Serious: Yes (Hospitalization, Other)
  Sender: FDA-Public Use
  Company Number: FR-JNJFOC-20071202616

PATIENT
  Sex: Female

DRUGS (3)
  1. LEUSTATIN [Suspect]
     Route: 042
  2. LEUSTATIN [Suspect]
     Route: 042
  3. LEUSTATIN [Suspect]
     Indication: HAIRY CELL LEUKAEMIA
     Route: 042

REACTIONS (3)
  - ACCIDENTAL OVERDOSE [None]
  - ANAEMIA [None]
  - THROMBOCYTOPENIA [None]
